FAERS Safety Report 15722499 (Version 1)
Quarter: 2018Q4

REPORT INFORMATION
  Report Type: Spontaneous
  Country: CH (occurrence: CH)
  Receive Date: 20181214
  Receipt Date: 20181214
  Transmission Date: 20190205
  Serious: Yes (Hospitalization)
  Sender: FDA-Public Use
  Company Number: CH-TEVA-2018-CH-988570

PATIENT
  Age: 71 Year
  Sex: Male

DRUGS (1)
  1. DOXORUBICIN [Suspect]
     Active Substance: DOXORUBICIN
     Indication: HEPATOCELLULAR CARCINOMA
     Dosage: DOSE: 2ML OF 100-300MICROM DEB (LOADED WITH 37.5 MG/ML OF DOXORUBICIN WAS INJECTED THROUGH A BALL...
     Route: 013

REACTIONS (1)
  - Embolism arterial [Recovered/Resolved]
